FAERS Safety Report 5318742-2 (Version None)
Quarter: 2007Q2

REPORT INFORMATION
  Report Type: 
  Country: None (occurrence: None)
  Receive Date: 20070503
  Receipt Date: 20070503
  Transmission Date: 20071010
  Serious: No
  Sender: FDA-Public Use
  Company Number: None

PATIENT
  Sex: Male
  Weight: 136.0791 kg

DRUGS (1)
  1. DEFINITY [Suspect]
     Dosage: DEFINITY X1 0.3 MG IV
     Route: 042
     Dates: start: 20070425

REACTIONS (2)
  - BACK PAIN [None]
  - DRUG HYPERSENSITIVITY [None]
